FAERS Safety Report 19779021 (Version 1)
Quarter: 2021Q3

REPORT INFORMATION
  Report Type: Other
  Country: JP (occurrence: JP)
  Receive Date: 20210902
  Receipt Date: 20210902
  Transmission Date: 20211014
  Serious: Yes (Other)
  Sender: FDA-Public Use
  Company Number: JP-ROCHE-2897427

PATIENT
  Age: 62 Year
  Sex: Male

DRUGS (2)
  1. EMICIZUMAB. [Suspect]
     Active Substance: EMICIZUMAB
     Indication: FACTOR VIII DEFICIENCY
     Route: 065
  2. EMICIZUMAB. [Suspect]
     Active Substance: EMICIZUMAB
     Route: 065

REACTIONS (2)
  - Epistaxis [Unknown]
  - Haemarthrosis [Unknown]
